FAERS Safety Report 20914229 (Version 2)
Quarter: 2022Q2

REPORT INFORMATION
  Report Type: Spontaneous
  Country: US (occurrence: US)
  Receive Date: 20220604
  Receipt Date: 20220618
  Transmission Date: 20220721
  Serious: No
  Sender: FDA-Public Use
  Company Number: US-SANOFI-01106801

PATIENT
  Age: 76 Year
  Sex: Female

DRUGS (1)
  1. LANTUS SOLOSTAR [Suspect]
     Active Substance: INSULIN GLARGINE
     Indication: Type 2 diabetes mellitus
     Dosage: DRUG STRUCTURE DOSAGE : 1; INJECTS 10 UNITS IN THE MORNING AND 16 UNITS IN THE EVENING

REACTIONS (3)
  - Inappropriate schedule of product administration [Unknown]
  - Therapeutic product effect delayed [Unknown]
  - Off label use [Unknown]
